FAERS Safety Report 4990089-3 (Version None)
Quarter: 2006Q2

REPORT INFORMATION
  Report Type: 
  Country: None (occurrence: None)
  Receive Date: 20060503
  Receipt Date: 20051026
  Transmission Date: 20061013
  Serious: Yes (Hospitalization)
  Sender: FDA-Public Use
  Company Number: NZ-MERCK-0510USA09587

PATIENT
  Age: 54 Year
  Sex: Male

DRUGS (1)
  1. VIOXX [Suspect]
     Indication: BACK PAIN
     Route: 048

REACTIONS (7)
  - CHEST DISCOMFORT [None]
  - DILATATION VENTRICULAR [None]
  - DYSPNOEA [None]
  - ERECTILE DYSFUNCTION [None]
  - HYPERTENSION [None]
  - MYOCARDIAL INFARCTION [None]
  - NIGHTMARE [None]
